FAERS Safety Report 5872657-X (Version None)
Quarter: 2008Q3

REPORT INFORMATION
  Report Type: 
  Country: None (occurrence: None)
  Receive Date: 20080905
  Receipt Date: 20080904
  Transmission Date: 20090109
  Serious: Yes (Hospitalization)
  Sender: FDA-Public Use
  Company Number: PHEH1996US06543

PATIENT
  Sex: Female
  Weight: 61 kg

DRUGS (14)
  1. NEORAL [Suspect]
     Route: 048
     Dates: start: 19951017
  2. VASOTEC [Suspect]
     Route: 048
     Dates: start: 19960209, end: 19960217
  3. IMURAN [Concomitant]
  4. PREDNISONE TAB [Concomitant]
  5. BACTRIM [Concomitant]
  6. ACYCLOVIR [Concomitant]
  7. CLOTRIMAZOLE [Concomitant]
  8. ENALAPRIL MALEATE [Concomitant]
  9. NIFEDIPINE [Concomitant]
  10. FLUVASTATIN [Concomitant]
  11. INSULIN INSULATARD NPH NORDISK [Concomitant]
  12. REGULAR INSULIN [Concomitant]
  13. CISAPRIDE [Concomitant]
  14. LORAZEPAM [Concomitant]

REACTIONS (2)
  - DRUG INTERACTION [None]
  - HYPERKALAEMIA [None]
